FAERS Safety Report 22269602 (Version 1)
Quarter: 2023Q2

REPORT INFORMATION
  Report Type: Spontaneous
  Country: ES (occurrence: ES)
  Receive Date: 20230501
  Receipt Date: 20230501
  Transmission Date: 20230721
  Serious: Yes (Other)
  Sender: FDA-Public Use
  Company Number: None

PATIENT
  Age: 23 Year
  Sex: Female
  Weight: 50 kg

DRUGS (1)
  1. LAMISIL [Suspect]
     Active Substance: TERBINAFINE HYDROCHLORIDE
     Indication: Antifungal treatment
     Dosage: 1 DOSAGE FORM, Q12H (1 COMPRIMIDO CADA 24H HORAS)
     Route: 048
     Dates: start: 20230324, end: 20230416

REACTIONS (4)
  - Oropharyngeal pain [Recovered/Resolved]
  - Urticaria [Recovering/Resolving]
  - Fatigue [Recovered/Resolved]
  - Pyrexia [Recovered/Resolved]

NARRATIVE: CASE EVENT DATE: 20230412
